FAERS Safety Report 5967473-4 (Version None)
Quarter: 2008Q4

REPORT INFORMATION
  Report Type: 
  Country: None (occurrence: None)
  Receive Date: 20081125
  Receipt Date: 20081114
  Transmission Date: 20090506
  Serious: Yes (Death)
  Sender: FDA-Public Use
  Company Number: GB-PFIZER INC-2008096741

PATIENT
  Age: 30 Month

DRUGS (5)
  1. CYCLOPHOSPHAMIDE [Suspect]
     Indication: OSTEOPETROSIS
     Route: 042
  2. CYCLOSPORINE [Suspect]
     Indication: OSTEOPETROSIS
  3. FLUDARABINE PHOSPHATE [Suspect]
     Indication: OSTEOPETROSIS
  4. TREOSULFAN [Suspect]
     Indication: OSTEOPETROSIS
     Dosage: TEXT:12 G/M2-FREQ:ON DAYS -6, -5 AND -4
  5. ATGAM [Concomitant]

REACTIONS (2)
  - ADENOVIRAL HEPATITIS [None]
  - EVANS SYNDROME [None]
